FAERS Safety Report 5311139-0 (Version None)
Quarter: 2007Q2

REPORT INFORMATION
  Report Type: 
  Country: None (occurrence: None)
  Receive Date: 20070423
  Receipt Date: 20070411
  Transmission Date: 20071010
  Serious: Yes (Hospitalization)
  Sender: FDA-Public Use
  Company Number: GXKR2007IR03337

PATIENT
  Age: 45 Year
  Sex: Male

DRUGS (1)
  1. CO-TRIMOXAZOLE (NGX) (SULFAMETHOXAZOLE,  TRIMETHROPIUM) UNKNOWN, 160/8 [Suspect]
     Indication: SINUSITIS
     Dosage: 1DF ONCE/SINGLE, ORAL
     Route: 048

REACTIONS (2)
  - BURNING SENSATION [None]
  - DRUG ERUPTION [None]
